FAERS Safety Report 4768321-0 (Version None)
Quarter: 2005Q3

REPORT INFORMATION
  Report Type: 
  Country: None (occurrence: None)
  Receive Date: 20050906
  Receipt Date: 20050706
  Transmission Date: 20060218
  Serious: No
  Sender: FDA-Public Use
  Company Number: 2005-BP-11360BP

PATIENT
  Age: 81 Year
  Sex: Male

DRUGS (8)
  1. SPIRIVA [Suspect]
     Indication: CHRONIC OBSTRUCTIVE PULMONARY DISEASE
     Dosage: 18 MCG (18 MCG, QD), IH
     Route: 055
     Dates: start: 20050520
  2. PREDNISONE [Concomitant]
  3. CPI,ADOM [Concomitant]
  4. LASIX [Concomitant]
  5. PLAQUENIL [Concomitant]
  6. COLCHICINE (COLCHICINE) [Concomitant]
  7. ATROOVENT (IPRATROPIUM BROMIDE) [Concomitant]
  8. QUESTRON [Concomitant]

REACTIONS (2)
  - DRY MOUTH [None]
  - LUNG DISORDER [None]
